FAERS Safety Report 18226303 (Version 1)
Quarter: 2020Q3

REPORT INFORMATION
  Report Type: Spontaneous
  Country: US (occurrence: US)
  Receive Date: 20200902
  Receipt Date: 20200902
  Transmission Date: 20201103
  Serious: Yes (Other)
  Sender: FDA-Public Use
  Company Number: None

PATIENT
  Age: 70 Year
  Sex: Female
  Weight: 111.15 kg

DRUGS (23)
  1. BLOOD SUGAR TESTER [Concomitant]
  2. CHROMIUN PICOLINATE [Concomitant]
  3. COENZYME Q10 [Concomitant]
     Active Substance: DIETARY SUPPLEMENT\UBIDECARENONE
  4. GLUCOSOMINE/CHONDRITIN [Concomitant]
  5. VITAMIN B12 [Concomitant]
     Active Substance: CYANOCOBALAMIN
  6. CINNAMON. [Concomitant]
     Active Substance: CINNAMON
  7. TUMERIC [Concomitant]
     Active Substance: HERBALS\TURMERIC
  8. GARLIC. [Concomitant]
     Active Substance: GARLIC
  9. CLONIDINE HCL .1MG [Suspect]
     Active Substance: CLONIDINE HYDROCHLORIDE
     Indication: HYPERTENSION
     Route: 048
     Dates: start: 20200507, end: 20200802
  10. OMEPRAZOLE. [Concomitant]
     Active Substance: OMEPRAZOLE
  11. INR TESTER [Concomitant]
  12. PACEMAKER [Concomitant]
     Active Substance: DEVICE
  13. TOPROL XL [Concomitant]
     Active Substance: METOPROLOL SUCCINATE
  14. DIGOXIN. [Concomitant]
     Active Substance: DIGOXIN
  15. JANUVIA [Concomitant]
     Active Substance: SITAGLIPTIN PHOSPHATE
  16. 5HTP [Concomitant]
  17. CALCIUM/MAFNESIUM [Concomitant]
  18. FENOFIBRATE. [Concomitant]
     Active Substance: FENOFIBRATE
  19. AMLODIPINE BESYLATE. [Concomitant]
     Active Substance: AMLODIPINE BESYLATE
  20. VITAMIN D3 [Concomitant]
     Active Substance: CHOLECALCIFEROL
  21. POTASSIUM CHLORIDE ER [Concomitant]
     Active Substance: POTASSIUM CHLORIDE
  22. VITAMIN C [Concomitant]
     Active Substance: ASCORBIC ACID
  23. MULTIVITAMIN [Concomitant]
     Active Substance: VITAMINS

REACTIONS (7)
  - Dry skin [None]
  - Dry eye [None]
  - Cataract [None]
  - Adverse drug reaction [None]
  - Visual impairment [None]
  - Dry mouth [None]
  - Lens dislocation [None]

NARRATIVE: CASE EVENT DATE: 20200721
